FAERS Safety Report 6277469-3 (Version None)
Quarter: 2009Q3

REPORT INFORMATION
  Report Type: 
  Country: None (occurrence: None)
  Receive Date: 20090722
  Receipt Date: 20090722
  Transmission Date: 20100115
  Serious: Yes (Other)
  Sender: FDA-Public Use
  Company Number: US-PFIZER INC-2009221048

PATIENT
  Sex: Female

DRUGS (1)
  1. TOVIAZ [Suspect]
     Indication: HYPERTONIC BLADDER
     Route: 048

REACTIONS (5)
  - DIABETES MELLITUS [None]
  - DIZZINESS [None]
  - GASTRIC BYPASS [None]
  - HYPOGLYCAEMIA [None]
  - MALAISE [None]
